FAERS Safety Report 16115636 (Version 2)
Quarter: 2019Q4

REPORT INFORMATION
  Report Type: Spontaneous
  Country: US (occurrence: US)
  Receive Date: 20190326
  Receipt Date: 20191216
  Transmission Date: 20200122
  Serious: Yes (Hospitalization, Other)
  Sender: FDA-Public Use
  Company Number: US-SUN PHARMACEUTICAL INDUSTRIES LTD-2019R1-202564

PATIENT
  Age: 62 Year
  Sex: Male
  Weight: 75.74 kg

DRUGS (2)
  1. CLINDAMYCIN. [Suspect]
     Active Substance: CLINDAMYCIN
     Indication: DIVERTICULITIS
     Dosage: 1 DOSAGE FORM, QID (EVERY SIX HOURS)
     Route: 065
     Dates: start: 20181208
  2. LEVOFLOXACIN. [Suspect]
     Active Substance: LEVOFLOXACIN
     Indication: DIVERTICULITIS
     Dosage: 1 DOSAGE FORM, DAILY
     Route: 065
     Dates: start: 20181208

REACTIONS (10)
  - Weight decreased [Recovered/Resolved]
  - Gait disturbance [Not Recovered/Not Resolved]
  - Wheelchair user [Unknown]
  - Ligament laxity [Not Recovered/Not Resolved]
  - Toxicity to various agents [Not Recovered/Not Resolved]
  - Spinal osteoarthritis [Unknown]
  - Tendon injury [Unknown]
  - Polyneuropathy [Not Recovered/Not Resolved]
  - Ligament injury [Unknown]
  - Constipation [Not Recovered/Not Resolved]

NARRATIVE: CASE EVENT DATE: 2018
